FAERS Safety Report 9365842 (Version 1)
Quarter: 2013Q2

REPORT INFORMATION
  Report Type: Spontaneous
  Country: CA (occurrence: CA)
  Receive Date: 20130625
  Receipt Date: 20130625
  Transmission Date: 20140414
  Serious: Yes (Other)
  Sender: FDA-Public Use
  Company Number: PHHY2013CA064639

PATIENT
  Sex: Male
  Weight: 86 kg

DRUGS (9)
  1. ZOMETA [Suspect]
     Dosage: 3 MG, UNK
     Route: 042
  2. BICALUTAMIDE [Concomitant]
  3. CHOLECALCIFEROL [Concomitant]
  4. ELIGARD [Concomitant]
  5. HYZAAR [Concomitant]
  6. INDOMETHACIN [Concomitant]
  7. LOSARTAN + HIDROCLOROTIAZIDA [Concomitant]
  8. METOPROLOL [Concomitant]
  9. VENLAFAXINE [Concomitant]

REACTIONS (9)
  - Nephrolithiasis [Recovered/Resolved]
  - Gait disturbance [Recovered/Resolved]
  - Muscular weakness [Recovered/Resolved]
  - Arthralgia [Recovered/Resolved]
  - Chest pain [Recovered/Resolved]
  - Dyspnoea [Recovered/Resolved]
  - Myalgia [Recovered/Resolved]
  - Oedema peripheral [Recovered/Resolved]
  - Pain in extremity [Recovered/Resolved]
